FAERS Safety Report 20685845 (Version 1)
Quarter: 2022Q2

REPORT INFORMATION
  Report Type: Spontaneous
  Country: CN (occurrence: CN)
  Receive Date: 20220407
  Receipt Date: 20220407
  Transmission Date: 20220721
  Serious: Yes (Other)
  Sender: FDA-Public Use
  Company Number: CN-TAKEDA-2022TJP036806

PATIENT
  Age: 21 Year
  Sex: Female
  Weight: 65 kg

DRUGS (5)
  1. VOGLIBOSE [Suspect]
     Active Substance: VOGLIBOSE
     Indication: Intentional overdose
     Dosage: UNK UNK, QD
     Route: 048
     Dates: start: 20220307, end: 20220307
  2. FEBUXOSTAT [Suspect]
     Active Substance: FEBUXOSTAT
     Indication: Intentional overdose
     Dosage: UNK UNK, QD
     Route: 048
     Dates: start: 20220307, end: 20220307
  3. LINAGLIPTIN [Suspect]
     Active Substance: LINAGLIPTIN
     Indication: Intentional overdose
     Dosage: UNK UNK, QD
     Route: 048
     Dates: start: 20220307, end: 20220307
  4. ROSUVASTATIN CALCIUM [Suspect]
     Active Substance: ROSUVASTATIN CALCIUM
     Indication: Intentional overdose
     Dosage: UNK UNK, QD
     Route: 048
     Dates: start: 20220307, end: 20220307
  5. HYDROCHLOROTHIAZIDE\VALSARTAN [Suspect]
     Active Substance: HYDROCHLOROTHIAZIDE\VALSARTAN
     Indication: Intentional overdose
     Dosage: UNK UNK, QD
     Route: 048
     Dates: start: 20220307, end: 20220307

REACTIONS (3)
  - Toxicity to various agents [Recovering/Resolving]
  - Gastritis [Recovering/Resolving]
  - Blood glucose decreased [Recovering/Resolving]

NARRATIVE: CASE EVENT DATE: 20220307
